FAERS Safety Report 18453492 (Version 2)
Quarter: 2020Q4

REPORT INFORMATION
  Report Type: Report from Study
  Country: AT (occurrence: AT)
  Receive Date: 20201102
  Receipt Date: 20201125
  Transmission Date: 20210114
  Serious: No
  Sender: FDA-Public Use
  Company Number: AT-AMGEN-AUTNI2020176339

PATIENT
  Age: 74 Year
  Sex: Male
  Weight: 66 kg

DRUGS (11)
  1. FLUOROURACIL. [Suspect]
     Active Substance: FLUOROURACIL
     Indication: COLORECTAL CANCER METASTATIC
     Dosage: 700 MILLIGRAM
     Route: 040
     Dates: start: 20200826
  2. OXALIPLATIN. [Suspect]
     Active Substance: OXALIPLATIN
     Dosage: 149 MILLIGRAM
     Route: 065
     Dates: start: 20200909
  3. FLUOROURACIL. [Suspect]
     Active Substance: FLUOROURACIL
     Dosage: 2818 MILLIGRAM
     Route: 042
     Dates: start: 20200826
  4. FLUOROURACIL. [Suspect]
     Active Substance: FLUOROURACIL
     Dosage: 2800 MILLIGRAM
     Route: 042
     Dates: start: 20200923
  5. PANITUMUMAB [Suspect]
     Active Substance: PANITUMUMAB
     Dosage: 394 MILLIGRAM
     Route: 042
     Dates: start: 20200923
  6. OXALIPLATIN. [Suspect]
     Active Substance: OXALIPLATIN
     Indication: COLORECTAL CANCER METASTATIC
     Dosage: 150 MILLIGRAM
     Route: 065
     Dates: start: 20200826
  7. PANITUMUMAB [Suspect]
     Active Substance: PANITUMUMAB
     Indication: COLORECTAL CANCER METASTATIC
     Dosage: 398 MILLIGRAM
     Route: 042
     Dates: start: 20200909
  8. PANITUMUMAB [Suspect]
     Active Substance: PANITUMUMAB
     Dosage: 396 MILLIGRAM
     Route: 042
     Dates: start: 20201007
  9. FLUOROURACIL. [Suspect]
     Active Substance: FLUOROURACIL
     Dosage: 2807 MILLIGRAM
     Route: 042
     Dates: start: 20200909
  10. FOLINIC ACID [Suspect]
     Active Substance: LEUCOVORIN
     Indication: COLORECTAL CANCER METASTATIC
     Dosage: 700 MILLIGRAM
     Route: 065
     Dates: start: 20200826
  11. OXALIPLATIN. [Suspect]
     Active Substance: OXALIPLATIN
     Dosage: 148 MILLIGRAM
     Route: 065
     Dates: start: 20200923

REACTIONS (1)
  - Skin reaction [Recovered/Resolved]

NARRATIVE: CASE EVENT DATE: 20201020
